FAERS Safety Report 6185197-8 (Version None)
Quarter: 2009Q2

REPORT INFORMATION
  Report Type: 
  Country: None (occurrence: None)
  Receive Date: 20090511
  Receipt Date: 20090429
  Transmission Date: 20091009
  Serious: Yes (Other)
  Sender: FDA-Public Use
  Company Number: US-BIOGENIDEC-2008BI021294

PATIENT
  Sex: Female

DRUGS (2)
  1. AVONEX [Suspect]
     Indication: MULTIPLE SCLEROSIS
     Route: 030
     Dates: start: 20031124, end: 20051202
  2. AVONEX [Suspect]
     Route: 030
     Dates: start: 20070201, end: 20071231

REACTIONS (3)
  - HEPATIC ENZYME INCREASED [None]
  - HEPATIC PAIN [None]
  - HEPATIC STEATOSIS [None]
